FAERS Safety Report 24931759 (Version 1)
Quarter: 2025Q1

REPORT INFORMATION
  Report Type: Report from Study
  Country: US (occurrence: US)
  Receive Date: 20250205
  Receipt Date: 20250205
  Transmission Date: 20250409
  Serious: No
  Sender: EXELIXIS
  Company Number: US-EXELIXIS-CABO-24078576

PATIENT
  Sex: Male

DRUGS (2)
  1. CABOMETYX [Suspect]
     Active Substance: CABOZANTINIB S-MALATE
     Indication: Renal cancer
     Dosage: 40 MG, QD
     Route: 048
  2. IMODIUM [Suspect]
     Active Substance: LOPERAMIDE HYDROCHLORIDE
     Indication: Diarrhoea

REACTIONS (9)
  - Taste disorder [Recovering/Resolving]
  - Gastrointestinal motility disorder [Recovering/Resolving]
  - Fatigue [Unknown]
  - Decreased appetite [Recovering/Resolving]
  - Early satiety [Recovering/Resolving]
  - Tooth extraction [Unknown]
  - Gait disturbance [Unknown]
  - Gout [Not Recovered/Not Resolved]
  - Hypotension [Unknown]
